FAERS Safety Report 25234651 (Version 1)
Quarter: 2025Q2

REPORT INFORMATION
  Report Type: Spontaneous
  Country: GB (occurrence: GB)
  Receive Date: 20250424
  Receipt Date: 20250424
  Transmission Date: 20250716
  Serious: Yes (Other)
  Sender: ACCORD
  Company Number: None

PATIENT
  Age: 75 Year
  Sex: Female
  Weight: 65 kg

DRUGS (7)
  1. EZETIMIBE [Suspect]
     Active Substance: EZETIMIBE
     Indication: Product used for unknown indication
     Dosage: STRENGTH: 10MG
     Dates: start: 20240626
  2. ESTRADIOL [Concomitant]
     Active Substance: ESTRADIOL
     Route: 067
     Dates: start: 20250310
  3. COCODAMOL [Concomitant]
     Active Substance: ACETAMINOPHEN\CODEINE PHOSPHATE
     Dates: start: 20240418
  4. RIZATRIPTAN [Concomitant]
     Active Substance: RIZATRIPTAN
     Dates: start: 20240418
  5. SIMVASTATIN [Concomitant]
     Active Substance: SIMVASTATIN
     Dates: start: 20240418
  6. VENLAFAXINE [Concomitant]
     Active Substance: VENLAFAXINE HYDROCHLORIDE
     Dates: start: 20240418
  7. LEVOTHYROXINE [Concomitant]
     Active Substance: LEVOTHYROXINE
     Dates: start: 20240626

REACTIONS (1)
  - Vertigo [Recovered/Resolved]
